FAERS Safety Report 23581546 (Version 1)
Quarter: 2024Q1

REPORT INFORMATION
  Report Type: Spontaneous
  Country: CA (occurrence: CA)
  Receive Date: 20240229
  Receipt Date: 20240229
  Transmission Date: 20240410
  Serious: Yes (Other)
  Sender: FDA-Public Use
  Company Number: CA-PFIZER INC-PV202400025873

PATIENT
  Age: 32 Year
  Sex: Male

DRUGS (4)
  1. METHOTREXATE SODIUM [Suspect]
     Active Substance: METHOTREXATE SODIUM
     Dosage: 15 MG, WEEKLY
     Route: 048
     Dates: start: 202304
  2. ENTOCORT [Concomitant]
     Active Substance: BUDESONIDE
     Dosage: UNK
     Dates: start: 202304
  3. PENTASA [Concomitant]
     Active Substance: MESALAMINE
     Dosage: 4 G, DAILY (NO RESPONSE)
     Dates: start: 202303, end: 202304
  4. MESALAMINE [Concomitant]
     Active Substance: MESALAMINE
     Dosage: UNK

REACTIONS (4)
  - Large intestinal ulcer [Unknown]
  - Ileal ulcer [Unknown]
  - Large intestinal stenosis [Unknown]
  - Drug ineffective [Unknown]
